FAERS Safety Report 22331575 (Version 1)
Quarter: 2023Q2

REPORT INFORMATION
  Report Type: Spontaneous
  Country: US (occurrence: None)
  Receive Date: 20230516
  Receipt Date: 20230516
  Transmission Date: 20230721
  Serious: Yes (Other)
  Sender: FDA-Public Use
  Company Number: None

PATIENT
  Age: 32 Year
  Sex: Female
  Weight: 90.9 kg

DRUGS (6)
  1. BUPROPION HYDROCHLORIDE [Suspect]
     Active Substance: BUPROPION HYDROCHLORIDE
     Indication: Bipolar disorder
     Dosage: FREQUENCY : DAILY;?
     Route: 048
     Dates: start: 20230301, end: 20230514
  2. BUPROPION HYDROCHLORIDE [Suspect]
     Active Substance: BUPROPION HYDROCHLORIDE
     Indication: Depression
  3. SERTRALINE [Suspect]
     Active Substance: SERTRALINE HYDROCHLORIDE
     Indication: Obsessive-compulsive disorder
     Dosage: OTHER QUANTITY : 30 TABLET(S);?FREQUENCY : DAILY;?
     Route: 048
  4. SERTRALINE [Suspect]
     Active Substance: SERTRALINE HYDROCHLORIDE
     Indication: Post-traumatic stress disorder
  5. SERTRALINE [Suspect]
     Active Substance: SERTRALINE HYDROCHLORIDE
     Indication: Depression
  6. SERTRALINE [Suspect]
     Active Substance: SERTRALINE HYDROCHLORIDE
     Indication: Perinatal depression

REACTIONS (4)
  - Constipation [None]
  - Insomnia [None]
  - Headache [None]
  - Seizure [None]

NARRATIVE: CASE EVENT DATE: 20230513
